FAERS Safety Report 21989251 (Version 1)
Quarter: 2023Q1

REPORT INFORMATION
  Report Type: Spontaneous
  Country: US (occurrence: None)
  Receive Date: 20230214
  Receipt Date: 20230214
  Transmission Date: 20230418
  Serious: Yes (Hospitalization)
  Sender: FDA-Public Use
  Company Number: US-Emmaus Medical, Inc.-EMM202302-000028

PATIENT
  Sex: Male

DRUGS (3)
  1. ENDARI [Suspect]
     Active Substance: GLUTAMINE
     Indication: Sickle cell disease
     Dosage: 10 G
     Route: 048
     Dates: start: 20230120
  2. ENDARI [Suspect]
     Active Substance: GLUTAMINE
     Dosage: 10 G DAILY
     Route: 048
     Dates: start: 20210101
  3. ADAKVEO [Concomitant]
     Active Substance: CRIZANLIZUMAB-TMCA
     Indication: Product used for unknown indication
     Dosage: UNKNOWN
     Route: 065

REACTIONS (3)
  - Condition aggravated [Unknown]
  - Drug ineffective [Unknown]
  - Product dose omission issue [Unknown]
